FAERS Safety Report 10153089 (Version 1)
Quarter: 2014Q2

REPORT INFORMATION
  Report Type: Spontaneous
  Country: CA (occurrence: CA)
  Receive Date: 20140505
  Receipt Date: 20140505
  Transmission Date: 20141212
  Serious: Yes (Death)
  Sender: FDA-Public Use
  Company Number: CA-BRISTOL-MYERS SQUIBB COMPANY-20678314

PATIENT
  Age: 25 Year
  Sex: Male

DRUGS (1)
  1. AZACTAM [Suspect]

REACTIONS (1)
  - Death [Fatal]
